FAERS Safety Report 4428646-5 (Version None)
Quarter: 2004Q3

REPORT INFORMATION
  Report Type: 
  Country: None (occurrence: None)
  Receive Date: 20040818
  Receipt Date: 20030814
  Transmission Date: 20050211
  Serious: No
  Sender: FDA-Public Use
  Company Number: US-BRISTOL-MYERS SQUIBB COMPANY-12356317

PATIENT
  Age: 50 Year
  Sex: Female

DRUGS (1)
  1. TEQUIN [Suspect]
     Indication: SINUSITIS
     Route: 048
     Dates: start: 20030813, end: 20030813

REACTIONS (4)
  - DIZZINESS [None]
  - DRY MOUTH [None]
  - HOT FLUSH [None]
  - NAUSEA [None]
